FAERS Safety Report 21905953 (Version 1)
Quarter: 2023Q1

REPORT INFORMATION
  Report Type: Report from Study
  Country: BR (occurrence: BR)
  Receive Date: 20230124
  Receipt Date: 20230124
  Transmission Date: 20230418
  Serious: Yes (Hospitalization, Other)
  Sender: FDA-Public Use
  Company Number: BR-ABBVIE-22K-020-4465035-00

PATIENT
  Age: 73 Year
  Sex: Female
  Weight: 67 kg

DRUGS (1)
  1. RINVOQ [Suspect]
     Active Substance: UPADACITINIB
     Indication: Rheumatoid arthritis
     Route: 048
     Dates: start: 20210716, end: 20220701

REACTIONS (11)
  - Pneumonia [Recovered/Resolved]
  - Bronchitis [Recovering/Resolving]
  - Malaise [Recovered/Resolved]
  - Oxygen saturation decreased [Recovering/Resolving]
  - Unevaluable event [Unknown]
  - Tremor [Unknown]
  - Feeling cold [Unknown]
  - Arthritis [Unknown]
  - Nasopharyngitis [Unknown]
  - Carotid artery occlusion [Unknown]
  - Hospitalisation [Unknown]

NARRATIVE: CASE EVENT DATE: 20220701
